FAERS Safety Report 15881893 (Version 3)
Quarter: 2019Q1

REPORT INFORMATION
  Report Type: Spontaneous
  Country: JP (occurrence: JP)
  Receive Date: 20190128
  Receipt Date: 20190325
  Transmission Date: 20190417
  Serious: Yes (Hospitalization)
  Sender: FDA-Public Use
  Company Number: JP-JNJFOC-20190133627

PATIENT
  Age: 70 Year
  Sex: Female

DRUGS (1)
  1. RISPERDAL CONSTA [Suspect]
     Active Substance: RISPERIDONE
     Indication: PRODUCT USED FOR UNKNOWN INDICATION
     Route: 030
     Dates: end: 2019

REACTIONS (2)
  - Pneumonia [Recovered/Resolved]
  - Hospitalisation [Unknown]

NARRATIVE: CASE EVENT DATE: 20190215
